FAERS Safety Report 11194156 (Version 5)
Quarter: 2015Q4

REPORT INFORMATION
  Report Type: Spontaneous
  Country: JP (occurrence: JP)
  Receive Date: 20150616
  Receipt Date: 20151026
  Transmission Date: 20160304
  Serious: Yes (Hospitalization)
  Sender: FDA-Public Use
  Company Number: JP-DSJP-DSJ-2015-118475

PATIENT
  Age: 82 Year
  Sex: Male
  Weight: 47 kg

DRUGS (10)
  1. LOXONIN TABLETS 60MG [Suspect]
     Active Substance: LOXOPROFEN
     Indication: JOINT ARTHROPLASTY
     Dosage: 60 MG, TID
     Route: 048
     Dates: start: 20150519, end: 20150604
  2. CEFAZOLIN SODIUM. [Concomitant]
     Active Substance: CEFAZOLIN SODIUM
     Indication: INFECTION PROPHYLAXIS
     Dosage: 1 G, BID
     Route: 042
     Dates: start: 20150520, end: 20150521
  3. REBAMIPIDE [Suspect]
     Active Substance: REBAMIPIDE
     Indication: JOINT ARTHROPLASTY
     Dosage: 100 MG, TID
     Route: 048
     Dates: start: 20150521, end: 20150604
  4. VEEN D [Concomitant]
     Active Substance: CALCIUM CHLORIDE\DEXTROSE\POTASSIUM CHLORIDE\SODIUM ACETATE\SODIUM CHLORIDE
     Indication: NUTRITIONAL SUPPLEMENTATION
     Dosage: 500 ML, QD
     Route: 042
     Dates: start: 20150520, end: 20150521
  5. GENINAX [Suspect]
     Active Substance: GARENOXACIN MESYLATE
     Indication: PNEUMONIA
     Dosage: 400 MG, QD
     Route: 048
     Dates: start: 20150530, end: 20150604
  6. UNASYN S [Suspect]
     Active Substance: AMPICILLIN SODIUM\SULBACTAM SODIUM
     Indication: PNEUMONIA
     Dosage: 1.5 G, BID
     Route: 042
     Dates: start: 20150522, end: 20150528
  7. LIXIANA TABLETS [Suspect]
     Active Substance: EDOXABAN TOSILATE MONOHYDRATE
     Indication: JOINT ARTHROPLASTY
     Dosage: 15 MG, QD
     Route: 048
     Dates: start: 20150522, end: 20150531
  8. LASIX [Concomitant]
     Active Substance: FUROSEMIDE
     Indication: PRODUCT USED FOR UNKNOWN INDICATION
     Dosage: 20 MG, QD
     Route: 042
     Dates: start: 20150522, end: 20150522
  9. LACTEC                             /00490001/ [Concomitant]
     Indication: ELECTROLYTE SUBSTITUTION THERAPY
     Dosage: 500 ML, QD
     Route: 042
     Dates: start: 20150518, end: 20150519
  10. SOSEGON                            /00052103/ [Concomitant]
     Indication: FRACTURE PAIN
     Dosage: 15 MG, QD
     Route: 042
     Dates: start: 20150518, end: 20150518

REACTIONS (1)
  - Interstitial lung disease [Recovering/Resolving]

NARRATIVE: CASE EVENT DATE: 20150521
